FAERS Safety Report 16675237 (Version 1)
Quarter: 2019Q3

REPORT INFORMATION
  Report Type: Spontaneous
  Country: US (occurrence: US)
  Receive Date: 20190624
  Receipt Date: 20190624
  Transmission Date: 20191004
  Serious: No
  Sender: FDA-Public Use
  Company Number: None

PATIENT
  Age: 76 Year
  Sex: Female

DRUGS (1)
  1. IBRANCE [Suspect]
     Active Substance: PALBOCICLIB
     Dates: start: 20190513

REACTIONS (9)
  - Weight increased [None]
  - Headache [None]
  - Contusion [None]
  - Fatigue [None]
  - Balance disorder [None]
  - Haemoglobin decreased [None]
  - Dizziness [None]
  - Dyspnoea [None]
  - Platelet count decreased [None]

NARRATIVE: CASE EVENT DATE: 20190624
